FAERS Safety Report 4910930-X (Version None)
Quarter: 2006Q1

REPORT INFORMATION
  Report Type: 
  Country: None (occurrence: None)
  Receive Date: 20060214
  Receipt Date: 20060202
  Transmission Date: 20060701
  Serious: Yes (Life-Threatening, Hospitalization)
  Sender: FDA-Public Use
  Company Number: JP-ROCHE-434607

PATIENT
  Age: 71 Year

DRUGS (8)
  1. PANALDINE [Suspect]
     Indication: CEREBRAL INFARCTION
     Route: 048
     Dates: start: 20051215, end: 20051215
  2. ACTIVASE [Suspect]
     Indication: CEREBRAL INFARCTION
     Route: 065
     Dates: start: 20051212
  3. DALACIN [Concomitant]
     Route: 048
  4. PRIMPERAN TAB [Concomitant]
  5. NICOTINIC ACID [Concomitant]
  6. PERDIPINE [Concomitant]
  7. RADICUT [Concomitant]
  8. DORMICUM [Concomitant]

REACTIONS (7)
  - COMA [None]
  - DEHYDRATION [None]
  - DEPRESSED LEVEL OF CONSCIOUSNESS [None]
  - HAEMODIALYSIS [None]
  - HEPATORENAL FAILURE [None]
  - HYPERTHERMIA [None]
  - RESPIRATORY FAILURE [None]
